FAERS Safety Report 18573790 (Version 1)
Quarter: 2020Q4

REPORT INFORMATION
  Report Type: Spontaneous
  Country: GB (occurrence: GB)
  Receive Date: 20201203
  Receipt Date: 20201203
  Transmission Date: 20210114
  Serious: Yes (Other)
  Sender: FDA-Public Use
  Company Number: GB-AXELLIA-003539

PATIENT
  Age: 56 Year
  Sex: Female
  Weight: 187 kg

DRUGS (16)
  1. BISOPROLOL [Concomitant]
     Active Substance: BISOPROLOL
  2. BENDROFLUMETHIAZIDE [Concomitant]
     Active Substance: BENDROFLUMETHIAZIDE
  3. CODEINE PHOSPHATE/PARACETAMOL [Concomitant]
     Active Substance: ACETAMINOPHEN\CODEINE PHOSPHATE
  4. AMLODIPINE [Concomitant]
     Active Substance: AMLODIPINE BESYLATE
  5. CLARITHROMYCIN. [Concomitant]
     Active Substance: CLARITHROMYCIN
  6. AMITRIPTYLINE [Concomitant]
     Active Substance: AMITRIPTYLINE
  7. RAMIPRIL. [Concomitant]
     Active Substance: RAMIPRIL
  8. ENOXAPARIN/ENOXAPARIN SODIUM [Concomitant]
     Active Substance: ENOXAPARIN\ENOXAPARIN SODIUM
  9. CLINDAMYCIN. [Concomitant]
     Active Substance: CLINDAMYCIN
  10. VANCOMYCIN [Suspect]
     Active Substance: VANCOMYCIN
     Indication: CELLULITIS
     Route: 042
     Dates: start: 20201105, end: 20201109
  11. VANCOMYCIN [Suspect]
     Active Substance: VANCOMYCIN
     Indication: CELLULITIS
     Route: 042
     Dates: start: 20201030, end: 20201104
  12. LEVOTHYROXINE. [Concomitant]
     Active Substance: LEVOTHYROXINE
  13. DOXYCYCLINE. [Concomitant]
     Active Substance: DOXYCYCLINE
  14. ATORVASTATIN [Concomitant]
     Active Substance: ATORVASTATIN
  15. ACETYLSALICYLIC ACID [Concomitant]
     Active Substance: ASPIRIN
  16. ORAMORPH [Concomitant]
     Active Substance: MORPHINE SULFATE

REACTIONS (5)
  - Red man syndrome [Recovering/Resolving]
  - Pyrexia [Unknown]
  - Fatigue [Unknown]
  - Incorrect drug administration rate [Unknown]
  - Incorrect dose administered [Unknown]

NARRATIVE: CASE EVENT DATE: 20201107
